FAERS Safety Report 5576718-4 (Version None)
Quarter: 2007Q4

REPORT INFORMATION
  Report Type: 
  Country: None (occurrence: None)
  Receive Date: 20071228
  Receipt Date: 20071218
  Transmission Date: 20080405
  Serious: Yes (Hospitalization)
  Sender: FDA-Public Use
  Company Number: US-JNJFOC-20071205172

PATIENT
  Age: 58 Year
  Sex: Female

DRUGS (7)
  1. ACETAMINOPHEN [Suspect]
  2. ACETAMINOPHEN [Suspect]
     Indication: DRUG USE FOR UNKNOWN INDICATION
     Dosage: UNKNOWN
  3. FLUOXETINE [Concomitant]
  4. DIAZEPAM [Concomitant]
  5. LANSOPRAZOLE [Concomitant]
  6. CONJUGATED ESTROGEN [Concomitant]
  7. SUMATRIPTAN SUCCINATE [Concomitant]

REACTIONS (5)
  - ELECTROCARDIOGRAM QT PROLONGED [None]
  - HYPOACUSIS [None]
  - METABOLIC ACIDOSIS [None]
  - OVERDOSE [None]
  - VENTRICULAR ARRHYTHMIA [None]
